FAERS Safety Report 18493621 (Version 2)
Quarter: 2021Q1

REPORT INFORMATION
  Report Type: Spontaneous
  Country: US (occurrence: US)
  Receive Date: 20201111
  Receipt Date: 20210216
  Transmission Date: 20210419
  Serious: No
  Sender: FDA-Public Use
  Company Number: US-TAKEDA-2020TUS045639

PATIENT
  Age: 47 Year
  Sex: Female
  Weight: 94.33 kg

DRUGS (29)
  1. ACETAMINOPHEN. [Concomitant]
     Active Substance: ACETAMINOPHEN
  2. HEPARIN [Concomitant]
     Active Substance: HEPARIN SODIUM
  3. CARVEDILOL. [Concomitant]
     Active Substance: CARVEDILOL
  4. TIZANIDINE. [Concomitant]
     Active Substance: TIZANIDINE
  5. CETIRIZINE [Concomitant]
     Active Substance: CETIRIZINE HYDROCHLORIDE
     Route: 065
  6. NUCYNTA ER [Concomitant]
     Active Substance: TAPENTADOL HYDROCHLORIDE
     Route: 065
  7. BENLYSTA [Concomitant]
     Active Substance: BELIMUMAB
  8. LIDOCAINE. [Concomitant]
     Active Substance: LIDOCAINE
  9. SODIUM CHLORIDE. [Concomitant]
     Active Substance: SODIUM CHLORIDE
  10. MOTEGRITY [Concomitant]
     Active Substance: PRUCALOPRIDE SUCCINATE
     Route: 065
  11. HYDROXYCHLOROQUINE [Concomitant]
     Active Substance: HYDROXYCHLOROQUINE
  12. VITAMIN D3 [Concomitant]
     Active Substance: CHOLECALCIFEROL
  13. OXYGEN. [Concomitant]
     Active Substance: OXYGEN
     Route: 065
  14. OMEPRAZOLE. [Concomitant]
     Active Substance: OMEPRAZOLE
  15. ISOSORBIDE. [Concomitant]
     Active Substance: ISOSORBIDE
  16. VICTOZA [Concomitant]
     Active Substance: LIRAGLUTIDE
  17. GAMMAGARD LIQUID [Suspect]
     Active Substance: HUMAN IMMUNOGLOBULIN G
     Indication: IMMUNODEFICIENCY COMMON VARIABLE
     Dosage: 35 GRAM, Q4WEEKS
     Route: 042
     Dates: start: 20190811
  18. ASPIRIN 81 [Concomitant]
     Active Substance: ASPIRIN
  19. NUCYNTA [Concomitant]
     Active Substance: TAPENTADOL HYDROCHLORIDE
  20. GAMMAGARD LIQUID [Suspect]
     Active Substance: HUMAN IMMUNOGLOBULIN G
     Dosage: 35 UNK, Q4WEEKS
     Route: 042
     Dates: start: 20190416
  21. TRINTELLIX [Concomitant]
     Active Substance: VORTIOXETINE HYDROBROMIDE
     Route: 065
  22. BUTRANS [Concomitant]
     Active Substance: BUPRENORPHINE
  23. CETRIZINE [Concomitant]
     Active Substance: CETIRIZINE HYDROCHLORIDE
  24. URSODIOL. [Concomitant]
     Active Substance: URSODIOL
  25. DIPHENHYDRAMINE. [Concomitant]
     Active Substance: DIPHENHYDRAMINE
  26. EPINEPHRINE. [Concomitant]
     Active Substance: EPINEPHRINE
  27. MULTIVITAMIN (16) [Concomitant]
     Active Substance: VITAMINS
  28. GABAPENTIN. [Concomitant]
     Active Substance: GABAPENTIN
  29. ELIQUIS [Concomitant]
     Active Substance: APIXABAN

REACTIONS (2)
  - Oxygen consumption increased [Unknown]
  - COVID-19 [Unknown]

NARRATIVE: CASE EVENT DATE: 202009
